FAERS Safety Report 10566059 (Version 2)
Quarter: 2014Q4

REPORT INFORMATION
  Report Type: Spontaneous
  Country: JP (occurrence: JP)
  Receive Date: 20141105
  Receipt Date: 20141211
  Transmission Date: 20150529
  Serious: Yes (Hospitalization, Other)
  Sender: FDA-Public Use
  Company Number: JP-TEVA-518845ISR

PATIENT
  Age: 13 Year
  Weight: 48 kg

DRUGS (8)
  1. SAXIZON [Suspect]
     Active Substance: HYDROCORTISONE SODIUM SUCCINATE
     Indication: URTICARIA
     Dosage: 300 MILLIGRAM DAILY;
     Route: 041
     Dates: start: 20141016, end: 20141016
  2. KIPRES TABLETS [Concomitant]
     Indication: ASTHMA
     Dosage: 5 MILLIGRAM DAILY; START DATE UNKNOWN
     Route: 048
  3. FLUTIDE DISKUS 100 [Suspect]
     Active Substance: FLUTICASONE PROPIONATE
     Indication: ASTHMA
     Dosage: 200 MICROGRAM DAILY;
     Route: 055
     Dates: start: 20141014, end: 20141015
  4. HOKUNALIN TAPE [Concomitant]
     Active Substance: TULOBUTEROL
     Indication: ASTHMA
     Dosage: 2 MILLIGRAM DAILY; START DATE UNKNOWN
     Route: 062
  5. BISOLVON INHALANT SOLUTION 0.2% [Concomitant]
     Indication: PRODUCT USED FOR UNKNOWN INDICATION
     Dosage: DOSAGE UNKNOWN
     Route: 055
  6. INTAL [Concomitant]
     Active Substance: CROMOLYN SODIUM
     Indication: PRODUCT USED FOR UNKNOWN INDICATION
     Dosage: DOSE UNKNOWN
     Route: 055
  7. VENETLIN FOR INHALATION [Concomitant]
     Indication: PRODUCT USED FOR UNKNOWN INDICATION
     Dosage: DOSAGE UNKNOWN
     Route: 055
  8. THEOPHYLLINE TAB [Concomitant]
     Indication: ASTHMA
     Dosage: 100 MILLIGRAM DAILY; START DATE UNKNOWN
     Route: 048

REACTIONS (1)
  - Anaphylactic shock [Recovered/Resolved]

NARRATIVE: CASE EVENT DATE: 20141016
